FAERS Safety Report 7576538-5 (Version None)
Quarter: 2011Q2

REPORT INFORMATION
  Report Type: 
  Country: None (occurrence: None)
  Receive Date: 20110628
  Receipt Date: 20110608
  Transmission Date: 20111010
  Serious: Yes (Other)
  Sender: FDA-Public Use
  Company Number: US-BAYER-2011-050143

PATIENT
  Sex: Female
  Weight: 88.435 kg

DRUGS (10)
  1. FISH OIL [Concomitant]
  2. ALEVE (CAPLET) [Suspect]
     Dosage: 2 DF, QD
     Route: 048
  3. METFORMIN HCL [Concomitant]
  4. VITAMIN D [Concomitant]
  5. ALENDRONATE SODIUM [Concomitant]
  6. BAYER EXTRA STRENGTH BACK + BODY PAIN [Suspect]
     Indication: ANALGESIC THERAPY
     Dosage: 2 DF, QD
     Route: 048
  7. HYDROCHLOROTHIAZIDE [Concomitant]
  8. VITAMIN B12 NOS [Concomitant]
  9. IRON SUPPLEMENT [Concomitant]
  10. ROPINIROLE [Concomitant]

REACTIONS (2)
  - RESTLESS LEGS SYNDROME [None]
  - CEREBROVASCULAR ACCIDENT [None]
